FAERS Safety Report 6752706-7 (Version None)
Quarter: 2010Q2

REPORT INFORMATION
  Report Type: 
  Country: None (occurrence: None)
  Receive Date: 20100528
  Receipt Date: 20100513
  Transmission Date: 20101027
  Serious: Yes (Death, Hospitalization)
  Sender: FDA-Public Use
  Company Number: 2010001981

PATIENT
  Age: 69 Year
  Sex: Male

DRUGS (1)
  1. ERLOTINIB      (ERLOTINIB) (TABLET) [Suspect]
     Indication: NON-SMALL CELL LUNG CANCER
     Dosage: ORAL
     Route: 048
     Dates: start: 20100408

REACTIONS (8)
  - ASTHENIA [None]
  - BLOOD SODIUM DECREASED [None]
  - GAIT DISTURBANCE [None]
  - HYPOVENTILATION [None]
  - HYPOXIA [None]
  - MUSCULAR WEAKNESS [None]
  - SOMNOLENCE [None]
  - SPINAL CORD COMPRESSION [None]
